FAERS Safety Report 5966136-9 (Version None)
Quarter: 2008Q4

REPORT INFORMATION
  Report Type: 
  Country: None (occurrence: None)
  Receive Date: 20081125
  Receipt Date: 20081117
  Transmission Date: 20090506
  Serious: Yes (Other)
  Sender: FDA-Public Use
  Company Number: US-BAYER-200838231NA

PATIENT
  Age: 53 Year
  Sex: Male

DRUGS (1)
  1. NEXAVAR [Suspect]
     Indication: RENAL CELL CARCINOMA
     Dosage: TOTAL DAILY DOSE: 800 MG  UNIT DOSE: 200 MG
     Route: 048
     Dates: start: 20081031

REACTIONS (6)
  - DIARRHOEA [None]
  - DRY SKIN [None]
  - GINGIVAL PAIN [None]
  - HAEMATOCHEZIA [None]
  - PAINFUL DEFAECATION [None]
  - PRURITUS [None]
